FAERS Safety Report 7931297-9 (Version None)
Quarter: 2011Q4

REPORT INFORMATION
  Report Type: 
  Country: None (occurrence: None)
  Receive Date: 20111121
  Receipt Date: 20111111
  Transmission Date: 20120403
  Serious: Yes (Hospitalization, Other)
  Sender: FDA-Public Use
  Company Number: US-BAYER-2011-040092

PATIENT
  Age: 34 Year
  Sex: Female
  Weight: 75 kg

DRUGS (5)
  1. YAZ [Suspect]
     Indication: MENSTRUAL CYCLE MANAGEMENT
  2. YAZ [Suspect]
     Indication: CONTRACEPTION
     Dosage: UNK UNK, QD
     Route: 048
     Dates: start: 20081201, end: 20090101
  3. YAZ [Suspect]
     Indication: PREMENSTRUAL SYNDROME
  4. RED BLOOD CELLS [Concomitant]
     Indication: ANAEMIA
     Dosage: 2 U, UNK
  5. NAPROXEN [Concomitant]
     Indication: DYSMENORRHOEA
     Dosage: 550 MG, PRN
     Route: 048
     Dates: start: 19910101

REACTIONS (8)
  - PAIN [None]
  - GALLBLADDER POLYP [None]
  - PULMONARY EMBOLISM [None]
  - INJURY [None]
  - EMOTIONAL DISTRESS [None]
  - ANXIETY [None]
  - ANHEDONIA [None]
  - HYPERPLASTIC CHOLECYSTOPATHY [None]
